FAERS Safety Report 7063802-1 (Version None)
Quarter: 2010Q4

REPORT INFORMATION
  Report Type: 
  Country: None (occurrence: None)
  Receive Date: 20101026
  Receipt Date: 20100823
  Transmission Date: 20110411
  Serious: No
  Sender: FDA-Public Use
  Company Number: US-ABBOTT-10P-163-0666909-00

PATIENT
  Sex: Female
  Weight: 68.1 kg

DRUGS (4)
  1. LUPRON DEPOT [Suspect]
     Indication: ENDOMETRIOSIS
     Dates: start: 20100816
  2. MOBIC [Concomitant]
     Indication: ARTHROPATHY
  3. MOBIC [Concomitant]
     Indication: ARTHRITIS
  4. MOBIC [Concomitant]
     Indication: CONNECTIVE TISSUE DISORDER

REACTIONS (13)
  - ABDOMINAL PAIN [None]
  - ABDOMINAL TENDERNESS [None]
  - ABNORMAL SENSATION IN EYE [None]
  - DYSURIA [None]
  - EMOTIONAL DISORDER [None]
  - EYE IRRITATION [None]
  - FATIGUE [None]
  - HEADACHE [None]
  - HOT FLUSH [None]
  - INSOMNIA [None]
  - NAUSEA [None]
  - NIGHT SWEATS [None]
  - VISION BLURRED [None]
